FAERS Safety Report 17982244 (Version 2)
Quarter: 2020Q3

REPORT INFORMATION
  Report Type: Spontaneous
  Country: CA (occurrence: CA)
  Receive Date: 20200706
  Receipt Date: 20200728
  Transmission Date: 20201103
  Serious: Yes (Hospitalization)
  Sender: FDA-Public Use
  Company Number: CA-REGENERON PHARMACEUTICALS, INC.-2020-47668

PATIENT

DRUGS (1)
  1. EYLEA [Suspect]
     Active Substance: AFLIBERCEPT
     Indication: NEOVASCULAR AGE-RELATED MACULAR DEGENERATION
     Dates: start: 202003

REACTIONS (1)
  - Myocardial ischaemia [Unknown]
